FAERS Safety Report 6862175-4 (Version None)
Quarter: 2010Q3

REPORT INFORMATION
  Report Type: 
  Country: None (occurrence: None)
  Receive Date: 20100719
  Receipt Date: 20100712
  Transmission Date: 20110219
  Serious: Yes (Other)
  Sender: FDA-Public Use
  Company Number: DSA_43240_2010

PATIENT
  Sex: Female

DRUGS (4)
  1. XENAZINE [Suspect]
     Indication: HUNTINGTON'S DISEASE
     Dosage: 12.5 MG TID ORAL
     Route: 048
     Dates: start: 20100510
  2. HUMULIN /00646001/ [Concomitant]
  3. LANTUS [Concomitant]
  4. SYNTHROID [Concomitant]

REACTIONS (6)
  - CONDITION AGGRAVATED [None]
  - CONSTIPATION [None]
  - DRUG INEFFECTIVE [None]
  - HUNTINGTON'S DISEASE [None]
  - NAUSEA [None]
  - VOMITING [None]
